FAERS Safety Report 5787952-2 (Version None)
Quarter: 2008Q2

REPORT INFORMATION
  Report Type: 
  Country: None (occurrence: None)
  Receive Date: 20080625
  Receipt Date: 20080620
  Transmission Date: 20081010
  Serious: Yes (Other)
  Sender: FDA-Public Use
  Company Number: B0526350A

PATIENT
  Age: 13 Year
  Sex: Female

DRUGS (1)
  1. AUGMENTIN [Suspect]
     Indication: ACUTE TONSILLITIS
     Route: 048
     Dates: start: 20080403, end: 20080406

REACTIONS (2)
  - GENITAL CANDIDIASIS [None]
  - GENITAL TRACT INFLAMMATION [None]
